FAERS Safety Report 23584888 (Version 1)
Quarter: 2024Q1

REPORT INFORMATION
  Report Type: Spontaneous
  Country: FR (occurrence: FR)
  Receive Date: 20240301
  Receipt Date: 20240301
  Transmission Date: 20240410
  Serious: Yes (Other)
  Sender: FDA-Public Use
  Company Number: FR-PFIZER INC-202300446604

PATIENT
  Age: 100 Month
  Sex: Male

DRUGS (3)
  1. ZOLEDRONIC ACID [Suspect]
     Active Substance: ZOLEDRONIC ACID
     Indication: Fracture
     Dosage: 0.05 MG/KG (0.05 MG/KG, 3 MONTHS)
     Route: 065
  2. PAMIDRONATE DISODIUM [Suspect]
     Active Substance: PAMIDRONATE DISODIUM
     Indication: Fracture
     Dosage: 0.7 MG/KG, QD (0.7 MG/KG, 1X/DAY, 3 DAYS EVERY 3 MONTHS)
     Route: 065
  3. INTERFERON ALFA NOS [Suspect]
     Active Substance: INTERFERON ALFA-2A OR INTERFERON ALFA-2B
     Indication: Fracture
     Dosage: UNK
     Route: 065

REACTIONS (2)
  - Fracture [Unknown]
  - Drug ineffective [Unknown]
